FAERS Safety Report 19432000 (Version 1)
Quarter: 2021Q2

REPORT INFORMATION
  Report Type: Report from Study
  Country: US (occurrence: US)
  Receive Date: 20210618
  Receipt Date: 20210618
  Transmission Date: 20210717
  Serious: Yes (Other)
  Sender: FDA-Public Use
  Company Number: US-SUN PHARMACEUTICAL INDUSTRIES LTD-2021R1-300390

PATIENT
  Age: 19 Year
  Sex: Male

DRUGS (1)
  1. FINASTERIDE. [Suspect]
     Active Substance: FINASTERIDE
     Indication: ANDROGENETIC ALOPECIA
     Dosage: UNK
     Route: 065

REACTIONS (12)
  - Testicular pain [Unknown]
  - Insomnia [Unknown]
  - Depression [Unknown]
  - Amnesia [Unknown]
  - Erectile dysfunction [Unknown]
  - Fatigue [Unknown]
  - Libido decreased [Unknown]
  - Penis disorder [Unknown]
  - Cognitive disorder [Unknown]
  - Feeling abnormal [Unknown]
  - Psychiatric symptom [Unknown]
  - Ejaculation disorder [Unknown]
